FAERS Safety Report 9198162 (Version 2)
Quarter: 2014Q2

REPORT INFORMATION
  Report Type: Report from Study
  Country: US (occurrence: US)
  Receive Date: 20130329
  Receipt Date: 20140617
  Transmission Date: 20141212
  Serious: Yes (Hospitalization)
  Sender: FDA-Public Use
  Company Number: US-BIOGENIDEC-2013BI028286

PATIENT
  Age: 52 Year
  Sex: Male

DRUGS (3)
  1. TYSABRI [Suspect]
     Indication: MULTIPLE SCLEROSIS
     Route: 042
     Dates: start: 20071003, end: 20121204
  2. TYSABRI [Suspect]
     Indication: MULTIPLE SCLEROSIS
     Route: 042
     Dates: start: 20130830
  3. AVONEX [Concomitant]
     Indication: MULTIPLE SCLEROSIS
     Route: 030

REACTIONS (6)
  - Mobility decreased [Not Recovered/Not Resolved]
  - Loss of consciousness [Recovered/Resolved]
  - Arthropathy [Unknown]
  - Multiple sclerosis relapse [Recovered/Resolved]
  - Weight decreased [Recovered/Resolved]
  - Memory impairment [Not Recovered/Not Resolved]
